FAERS Safety Report 14389642 (Version 2)
Quarter: 2019Q3

REPORT INFORMATION
  Report Type: Spontaneous
  Country: US (occurrence: US)
  Receive Date: 20180115
  Receipt Date: 20190925
  Transmission Date: 20191004
  Serious: Yes (Other)
  Sender: FDA-Public Use
  Company Number: US-SANOFI-AVENTIS-2012SA021642

PATIENT
  Age: 61 Year
  Sex: Female
  Weight: 58 kg

DRUGS (29)
  1. ADRIAMYCIN [Concomitant]
     Active Substance: DOXORUBICIN HYDROCHLORIDE
     Dosage: UNK UNK,Q3W
     Route: 065
     Dates: start: 20110907, end: 20110907
  2. CYTOXAN [Concomitant]
     Active Substance: CYCLOPHOSPHAMIDE
     Dosage: UNK UNK,Q3W
     Route: 065
     Dates: start: 20110706, end: 20110706
  3. NEULASTA [Concomitant]
     Active Substance: PEGFILGRASTIM
     Dosage: UNK, UNK
     Route: 065
  4. CYMBALTA [Concomitant]
     Active Substance: DULOXETINE HYDROCHLORIDE
     Dosage: UNK
  5. ADRIAMYCIN [Concomitant]
     Active Substance: DOXORUBICIN HYDROCHLORIDE
     Dosage: UNK UNK,Q3W
     Route: 065
     Dates: start: 20110727, end: 20110727
  6. SMZ-TMP [Concomitant]
     Active Substance: SULFAMETHOXAZOLE\TRIMETHOPRIM
     Dosage: UNK
     Dates: start: 2008, end: 2014
  7. ADRIAMYCIN [Concomitant]
     Active Substance: DOXORUBICIN HYDROCHLORIDE
     Indication: BREAST CANCER FEMALE
     Dosage: UNK UNK,Q3W
     Route: 065
     Dates: start: 20110520, end: 20110520
  8. ADRIAMYCIN [Concomitant]
     Active Substance: DOXORUBICIN HYDROCHLORIDE
     Dosage: UNK UNK,Q3W
     Route: 065
     Dates: start: 20110610, end: 20110610
  9. ADRIAMYCIN [Concomitant]
     Active Substance: DOXORUBICIN HYDROCHLORIDE
     Dosage: UNK UNK,Q3W
     Route: 065
     Dates: start: 20110907, end: 20110907
  10. NEOSAR [Concomitant]
     Active Substance: CYCLOPHOSPHAMIDE
     Indication: BREAST CANCER FEMALE
     Dosage: UNK, UNK
     Route: 065
  11. RANITIDINE. [Concomitant]
     Active Substance: RANITIDINE
     Dosage: UNK
     Dates: start: 2008, end: 2014
  12. ROGAINE [Concomitant]
     Active Substance: MINOXIDIL
     Dosage: UNK
     Dates: start: 2012
  13. CYTOXAN [Concomitant]
     Active Substance: CYCLOPHOSPHAMIDE
     Dosage: UNK UNK,Q3W
     Route: 065
     Dates: start: 20110610, end: 20110610
  14. DOXORUBICIN [Concomitant]
     Active Substance: DOXORUBICIN
     Indication: BREAST CANCER FEMALE
     Dosage: UNK
  15. ADRIAMYCIN [Concomitant]
     Active Substance: DOXORUBICIN HYDROCHLORIDE
     Dosage: UNK UNK,Q3W
     Route: 065
     Dates: start: 20110706, end: 20110706
  16. LEXAPRO [Concomitant]
     Active Substance: ESCITALOPRAM OXALATE
     Dosage: UNK
  17. TAXOTERE [Suspect]
     Active Substance: DOCETAXEL
     Dosage: 120 MG,Q3W
     Route: 042
     Dates: start: 20110907, end: 20110907
  18. CYTOXAN [Concomitant]
     Active Substance: CYCLOPHOSPHAMIDE
     Indication: BREAST CANCER
     Dosage: UNK UNK,Q3W
     Route: 065
     Dates: start: 20110520, end: 20110520
  19. LASIX [Concomitant]
     Active Substance: FUROSEMIDE
     Dosage: UNK, UNK
     Route: 065
  20. ADRIAMYCIN [Concomitant]
     Active Substance: DOXORUBICIN HYDROCHLORIDE
     Dosage: UNK UNK,Q3W
     Route: 065
     Dates: start: 20110817, end: 20110817
  21. CYTOXAN [Concomitant]
     Active Substance: CYCLOPHOSPHAMIDE
     Dosage: UNK UNK,Q3W
     Route: 065
     Dates: start: 20110727, end: 20110727
  22. CYTOXAN [Concomitant]
     Active Substance: CYCLOPHOSPHAMIDE
     Dosage: UNK UNK,Q3W
     Route: 065
     Dates: start: 20110817, end: 20110817
  23. RANITIDINE HCL [Concomitant]
     Active Substance: RANITIDINE HYDROCHLORIDE
     Dosage: UNK
     Dates: start: 1999
  24. AMOXICILLIN. [Concomitant]
     Active Substance: AMOXICILLIN
     Dosage: UNK
  25. CITALOPRAM [Concomitant]
     Active Substance: CITALOPRAM HYDROBROMIDE
     Dosage: UNK
     Dates: start: 2008, end: 2011
  26. TAXOTERE [Suspect]
     Active Substance: DOCETAXEL
     Indication: BREAST CANCER FEMALE
     Dosage: 120 MG,Q3W
     Route: 042
     Dates: start: 20110520, end: 20110520
  27. CYTOXAN [Concomitant]
     Active Substance: CYCLOPHOSPHAMIDE
     Dosage: UNK UNK,Q3W
     Route: 065
     Dates: start: 20110907, end: 20110907
  28. PROTONIX [OMEPRAZOLE] [Concomitant]
     Active Substance: OMEPRAZOLE
     Dosage: UNK, UNK
     Route: 065
  29. CYCLOPHOSPHAMIDE. [Concomitant]
     Active Substance: CYCLOPHOSPHAMIDE
     Indication: BREAST CANCER FEMALE
     Dosage: UNK

REACTIONS (2)
  - Psychological trauma [Unknown]
  - Alopecia [Recovering/Resolving]

NARRATIVE: CASE EVENT DATE: 201106
